FAERS Safety Report 5765816-8 (Version None)
Quarter: 2008Q2

REPORT INFORMATION
  Report Type: 
  Country: None (occurrence: None)
  Receive Date: 20080611
  Receipt Date: 20080530
  Transmission Date: 20081010
  Serious: Yes (Hospitalization)
  Sender: FDA-Public Use
  Company Number: JP-PFIZER INC-2005066893

PATIENT
  Sex: Female
  Weight: 62.4 kg

DRUGS (28)
  1. IRINOTECAN HCL [Suspect]
     Indication: NON-SMALL CELL LUNG CANCER
     Dosage: DAILY DOSE:152MG-FREQ:INTERMITTENT
     Route: 042
     Dates: start: 20050201, end: 20050322
  2. GEMZAR [Suspect]
     Indication: NON-SMALL CELL LUNG CANCER
     Dosage: DAILY DOSE:1520MG-FREQ:INTERMITTENT
     Route: 042
     Dates: start: 20050201, end: 20050322
  3. NEO-LOTAN [Concomitant]
     Indication: HYPERTENSION
     Route: 048
  4. FLUITRAN [Concomitant]
     Indication: HYPERTENSION
     Route: 048
  5. GLIMICRON [Concomitant]
     Indication: DIABETES MELLITUS
     Route: 048
  6. GLUCOBAY [Concomitant]
     Indication: DIABETES MELLITUS
     Route: 048
  7. LIPITOR [Concomitant]
     Indication: HYPERLIPIDAEMIA
     Route: 048
  8. MENTAX [Concomitant]
     Route: 061
  9. ROHTO [Concomitant]
     Route: 047
  10. MELBIN [Concomitant]
     Indication: DIABETES MELLITUS
     Route: 048
  11. SEISHOKU [Concomitant]
     Route: 042
     Dates: start: 20050125, end: 20050125
  12. SEISHOKU [Concomitant]
     Route: 042
     Dates: start: 20050201, end: 20050322
  13. SEISHOKU [Concomitant]
     Route: 042
     Dates: start: 20050204, end: 20050207
  14. SOLULACT-D [Concomitant]
     Indication: DECREASED APPETITE
     Route: 042
     Dates: start: 20050204, end: 20050207
  15. ALL OTHER THERAPEUTIC PRODUCTS [Concomitant]
     Indication: DECREASED APPETITE
     Route: 042
     Dates: start: 20050204, end: 20050209
  16. CONCLYTE-NA [Concomitant]
     Indication: DECREASED APPETITE
     Route: 042
     Dates: start: 20050207, end: 20050209
  17. ASPARA K [Concomitant]
     Indication: DECREASED APPETITE
     Route: 042
     Dates: start: 20050207, end: 20050209
  18. ENSURE [Concomitant]
     Indication: DECREASED APPETITE
     Route: 048
     Dates: start: 20050209, end: 20050209
  19. LOXONIN [Concomitant]
     Indication: CANCER PAIN
     Route: 048
     Dates: start: 20050205, end: 20050205
  20. VOLTAREN [Concomitant]
     Indication: CANCER PAIN
     Route: 054
     Dates: start: 20050205, end: 20050205
  21. MILTAX [Concomitant]
     Indication: CANCER PAIN
     Route: 061
     Dates: start: 20050205, end: 20050209
  22. ISODINE [Concomitant]
     Indication: INFECTION PROPHYLAXIS
     Route: 048
  23. LOPERAMIDE HCL [Concomitant]
     Indication: DIARRHOEA
     Route: 048
     Dates: start: 20050210, end: 20050216
  24. TAMIFLU [Concomitant]
     Indication: INFLUENZA
     Route: 048
     Dates: start: 20050304, end: 20050308
  25. GLUCOSE [Concomitant]
     Route: 042
     Dates: start: 20050201, end: 20050322
  26. SOLITA T [Concomitant]
     Route: 042
     Dates: start: 20050201, end: 20050322
  27. HANGE-SHASHIN-TO [Concomitant]
     Indication: DIARRHOEA
     Route: 048
     Dates: start: 20050210, end: 20050216
  28. HANGE-SHASHIN-TO [Concomitant]
     Route: 048

REACTIONS (1)
  - INTERSTITIAL LUNG DISEASE [None]
